FAERS Safety Report 6376021-9 (Version None)
Quarter: 2009Q3

REPORT INFORMATION
  Report Type: 
  Country: None (occurrence: None)
  Receive Date: 20090924
  Receipt Date: 20090916
  Transmission Date: 20100115
  Serious: Yes (Other)
  Sender: FDA-Public Use
  Company Number: PHHY2009BR24016

PATIENT
  Sex: Male

DRUGS (1)
  1. EXELON [Suspect]
     Dosage: 9 MG/5CM2
     Route: 062

REACTIONS (3)
  - DIZZINESS [None]
  - LOSS OF CONTROL OF LEGS [None]
  - URINARY INCONTINENCE [None]
